FAERS Safety Report 16376870 (Version 1)
Quarter: 2019Q3

REPORT INFORMATION
  Report Type: Spontaneous
  Country: US (occurrence: US)
  Receive Date: 20190524
  Receipt Date: 20190524
  Transmission Date: 20191004
  Serious: No
  Sender: FDA-Public Use
  Company Number: None

PATIENT
  Sex: Female

DRUGS (2)
  1. METFORMIN [Suspect]
     Active Substance: METFORMIN HYDROCHLORIDE
  2. GLIPIZDE [Suspect]
     Active Substance: GLIPIZIDE

REACTIONS (3)
  - Glycosylated haemoglobin increased [None]
  - Drug ineffective [None]
  - Blood glucose increased [None]
